FAERS Safety Report 5383563-1 (Version None)
Quarter: 2007Q3

REPORT INFORMATION
  Report Type: 
  Country: None (occurrence: None)
  Receive Date: 20070710
  Receipt Date: 20070702
  Transmission Date: 20080115
  Serious: Yes (Hospitalization)
  Sender: FDA-Public Use
  Company Number: US-MERCK-0705USA01143

PATIENT
  Age: 83 Year
  Sex: Female

DRUGS (3)
  1. FOSAMAX [Suspect]
     Indication: OSTEOPOROSIS
     Route: 048
     Dates: start: 19970101
  2. LIPITOR [Concomitant]
     Route: 065
  3. SYNTHROID [Concomitant]
     Route: 065

REACTIONS (3)
  - ATRIAL FIBRILLATION [None]
  - SYNCOPE [None]
  - URINARY TRACT INFECTION [None]
